FAERS Safety Report 7530780-8 (Version None)
Quarter: 2011Q2

REPORT INFORMATION
  Report Type: 
  Country: None (occurrence: None)
  Receive Date: 20110607
  Receipt Date: 20110601
  Transmission Date: 20111010
  Serious: Yes (Death)
  Sender: FDA-Public Use
  Company Number: BE-MERCK-1106BEL00002B1

PATIENT

DRUGS (1)
  1. ISENTRESS [Suspect]
     Route: 065

REACTIONS (2)
  - UMBILICAL CORD AROUND NECK [None]
  - DRUG EXPOSURE DURING PREGNANCY [None]
